FAERS Safety Report 7513935-8 (Version None)
Quarter: 2011Q2

REPORT INFORMATION
  Report Type: 
  Country: None (occurrence: None)
  Receive Date: 20110531
  Receipt Date: 20110518
  Transmission Date: 20111010
  Serious: Yes (Other)
  Sender: FDA-Public Use
  Company Number: PHHY2011IT42692

PATIENT
  Sex: Female

DRUGS (4)
  1. LORMETAZEPAM [Suspect]
     Dosage: UNK
     Dates: start: 20110215
  2. VENLAFAXINE [Suspect]
     Dosage: UNK
     Dates: start: 20110215
  3. MIRTAZAPINE [Suspect]
     Dosage: UNK
     Dates: start: 20110215
  4. ZOLPIDEM [Suspect]
     Dosage: UNK
     Dates: start: 20110215

REACTIONS (2)
  - SOPOR [None]
  - DRUG ABUSE [None]
